FAERS Safety Report 5454883-7 (Version None)
Quarter: 2007Q3

REPORT INFORMATION
  Report Type: 
  Country: None (occurrence: None)
  Receive Date: 20070917
  Receipt Date: 20061023
  Transmission Date: 20080115
  Serious: Yes (Other)
  Sender: FDA-Public Use
  Company Number: US-ASTRAZENECA-2006UW20487

PATIENT

DRUGS (1)
  1. SEROQUEL [Suspect]
     Indication: BIPOLAR I DISORDER
     Dosage: TITRATED UP TO 600 MG
     Route: 048

REACTIONS (1)
  - BLOOD GLUCOSE INCREASED [None]
